FAERS Safety Report 6422485-1 (Version None)
Quarter: 2009Q4

REPORT INFORMATION
  Report Type: 
  Country: None (occurrence: None)
  Receive Date: 20091030
  Receipt Date: 20091021
  Transmission Date: 20100525
  Serious: Yes (Other)
  Sender: FDA-Public Use
  Company Number: JP-MERCK-0910USA02989

PATIENT
  Age: 22 Year
  Sex: Female

DRUGS (2)
  1. DECADRON [Suspect]
     Indication: CONDUCTION DISORDER
     Route: 048
  2. RITODRINE HYDROCHLORIDE [Concomitant]
     Indication: HEART RATE INCREASED
     Route: 042

REACTIONS (2)
  - ADVERSE EVENT [None]
  - DRUG EXPOSURE DURING PREGNANCY [None]
